FAERS Safety Report 4339569-4 (Version None)
Quarter: 2004Q1

REPORT INFORMATION
  Report Type: 
  Country: None (occurrence: None)
  Receive Date: 20040329
  Receipt Date: 20040109
  Transmission Date: 20041129
  Serious: No
  Sender: FDA-Public Use
  Company Number: 04P-163-0246779-00

PATIENT
  Age: 56 Year
  Sex: Female

DRUGS (8)
  1. HUMIRA [Suspect]
     Indication: RHEUMATOID ARTHRITIS
     Dosage: 40 MG, 1 IN 2 WK, SUBCUTANEUOS
     Route: 058
     Dates: start: 20031024, end: 20031203
  2. OXYCODONE HCL [Concomitant]
  3. HYDROCODONE [Concomitant]
  4. AMITRIPTYLINE HYDROCHLORIDE [Concomitant]
  5. ZOLPIDEM TARTRATE [Concomitant]
  6. PREDNISONE [Concomitant]
  7. ESTRADIOL [Concomitant]
  8. . [Suspect]

REACTIONS (3)
  - STOMATITIS [None]
  - SWOLLEN TONGUE [None]
  - URTICARIA [None]
